FAERS Safety Report 6489868-5 (Version None)
Quarter: 2009Q4

REPORT INFORMATION
  Report Type: 
  Country: None (occurrence: None)
  Receive Date: 20091210
  Receipt Date: 20091210
  Transmission Date: 20100525
  Serious: Yes (Other)
  Sender: FDA-Public Use
  Company Number: None

PATIENT

DRUGS (1)
  1. HEPARIN [Suspect]
     Indication: CORONARY ARTERIAL STENT INSERTION
     Dosage: 20,000 UNITS IV BOLUS DIVIDED
     Route: 042
     Dates: start: 20091103

REACTIONS (1)
  - THERAPY REGIMEN CHANGED [None]
